FAERS Safety Report 7770926-X (Version None)
Quarter: 2011Q3

REPORT INFORMATION
  Report Type: 
  Country: None (occurrence: None)
  Receive Date: 20110922
  Receipt Date: 20110414
  Transmission Date: 20111222
  Serious: Yes (Other)
  Sender: FDA-Public Use
  Company Number: US-ASTRAZENECA-2011SE21510

PATIENT
  Sex: Male

DRUGS (1)
  1. SEROQUEL [Suspect]
     Dosage: ONE DOSE AT NIGHT
     Route: 048
     Dates: start: 20010101, end: 20010101

REACTIONS (4)
  - DYSPNOEA [None]
  - SWELLING FACE [None]
  - LIP SWELLING [None]
  - HYPERSENSITIVITY [None]
